FAERS Safety Report 4755424-X (Version None)
Quarter: 2005Q3

REPORT INFORMATION
  Report Type: 
  Country: None (occurrence: None)
  Receive Date: 20050826
  Receipt Date: 20050826
  Transmission Date: 20060218
  Serious: No
  Sender: FDA-Public Use
  Company Number: None

PATIENT
  Age: 83 Year
  Sex: Female

DRUGS (11)
  1. FORTEO [Suspect]
     Indication: RHEUMATOID ARTHRITIS
     Dosage: 20MCG  QD  SQ
     Route: 058
     Dates: start: 20041101, end: 20050825
  2. MECLIZINE [Concomitant]
  3. KETOCONAZOLE [Concomitant]
  4. VIT B-12 [Concomitant]
  5. ATIVAN [Concomitant]
  6. ELAVIL [Concomitant]
  7. CELEXA [Concomitant]
  8. MIRALAX [Concomitant]
  9. PREVACID [Concomitant]
  10. BENTYL [Concomitant]
  11. ETODOLAC [Concomitant]

REACTIONS (3)
  - ASTHENIA [None]
  - MYALGIA [None]
  - PAIN IN EXTREMITY [None]
